FAERS Safety Report 6829546 (Version 3)
Quarter: 2012Q4

REPORT INFORMATION
  Report Type: 
  Country: CA (occurrence: CA)
  Receive Date: 20081202
  Receipt Date: 20121111
  Transmission Date: 20130627
  Serious: Yes (Hospitalization, Other)
  Sender: FDA-Public Use
  Company Number: PHMT2006CA01389

PATIENT
  Sex: Male

DRUGS (10)
  1. SANDOSTATIN LAR [Suspect]
     Indication: CARCINOID TUMOUR
     Dosage: 20 mg, QMO
     Dates: start: 20050630
  2. SANDOSTATIN LAR [Suspect]
     Dosage: 30 mg, QMO
     Route: 030
  3. FOLIC ACID [Concomitant]
  4. GABAPENTIN [Concomitant]
  5. HYDROMORPHONE [Concomitant]
  6. HYDROMORPH CONTIN [Concomitant]
  7. LIPITOR /UNK/ [Concomitant]
  8. METOPROLOL [Concomitant]
  9. NAPROXEN [Concomitant]
  10. PLAVIX [Concomitant]

REACTIONS (9)
  - Device leakage [Not Recovered/Not Resolved]
  - Renal failure [Unknown]
  - Weight decreased [Unknown]
  - Increased appetite [Unknown]
  - Pain [Unknown]
  - Fatigue [Unknown]
  - Heart rate decreased [Unknown]
  - Asthenia [Unknown]
  - Blood glucose increased [Unknown]
